FAERS Safety Report 21951962 (Version 1)
Quarter: 2023Q1

REPORT INFORMATION
  Report Type: Spontaneous
  Country: JP (occurrence: JP)
  Receive Date: 20230203
  Receipt Date: 20230203
  Transmission Date: 20230418
  Serious: No
  Sender: FDA-Public Use
  Company Number: JP-TAKEDA-2021TJP135937

PATIENT
  Age: 61 Year
  Sex: Male

DRUGS (2)
  1. CABOMETYX [Suspect]
     Active Substance: CABOZANTINIB S-MALATE
     Indication: Metastasis
     Dosage: 60 MG, QD
     Route: 048
  2. HEPARINOID [Concomitant]
     Dosage: UNK
     Route: 050

REACTIONS (1)
  - Scrotal erythema [Recovering/Resolving]
